FAERS Safety Report 23714314 (Version 1)
Quarter: 2024Q2

REPORT INFORMATION
  Report Type: Other
  Country: US (occurrence: None)
  Receive Date: 20240405
  Receipt Date: 20240405
  Transmission Date: 20240716
  Serious: Yes (Hospitalization, Other)
  Sender: FDA-Public Use
  Company Number: US-ROCHE-3533455

PATIENT
  Age: 69 Year
  Sex: Male
  Weight: 271 kg

DRUGS (16)
  1. OCREVUS [Suspect]
     Active Substance: OCRELIZUMAB
     Indication: Multiple sclerosis
     Dosage: AT LEAST 2 HRS AND 30 MINUTES VIA PUMP USING A 0.2 MICRON FILTER FOR EVERY 1 YEAR.
     Route: 042
  2. SODIUM CHLORIDE [Concomitant]
     Active Substance: SODIUM CHLORIDE
  3. ACETAMINOPHEN [Concomitant]
     Active Substance: ACETAMINOPHEN
     Route: 048
  4. DIPHENHYDRAMINE [Concomitant]
     Active Substance: DIPHENHYDRAMINE
     Route: 048
  5. DIPHENHYDRAMINE [Concomitant]
     Active Substance: DIPHENHYDRAMINE
     Dosage: IVP
  6. METHYLPREDNISOLONE [Concomitant]
     Active Substance: METHYLPREDNISOLONE
  7. MONTELUKAST [Concomitant]
     Active Substance: MONTELUKAST SODIUM
  8. NIACIN [Concomitant]
     Active Substance: NIACIN
  9. METFORMIN [Concomitant]
     Active Substance: METFORMIN HYDROCHLORIDE
  10. ELIQUIS [Concomitant]
     Active Substance: APIXABAN
  11. ATORVASTATIN [Concomitant]
     Active Substance: ATORVASTATIN
  12. GLIPIZIDE [Concomitant]
     Active Substance: GLIPIZIDE
  13. VITAMIN B12 [Concomitant]
     Active Substance: CYANOCOBALAMIN
  14. VITAMIN D3 [Concomitant]
     Active Substance: CHOLECALCIFEROL
  15. OXYBUTYNIN [Concomitant]
     Active Substance: OXYBUTYNIN\OXYBUTYNIN CHLORIDE
  16. MUCINEX [Concomitant]
     Active Substance: GUAIFENESIN

REACTIONS (5)
  - Hemiparesis [Unknown]
  - COVID-19 [Unknown]
  - Ataxia [Unknown]
  - Hemiparesis [Unknown]
  - Sensory disturbance [Unknown]
